FAERS Safety Report 8070625 (Version 2)
Quarter: 2012Q4

REPORT INFORMATION
  Report Type: Report from Study
  Country: DE (occurrence: DE)
  Receive Date: 20110805
  Receipt Date: 20121218
  Transmission Date: 20130627
  Serious: Yes (Other)
  Sender: FDA-Public Use
  Company Number: DE-JNJFOC-20110801902

PATIENT
  Sex: Male
  Weight: 83 kg

DRUGS (16)
  1. PALEXIA RETARD [Suspect]
     Indication: POLYMYALGIA RHEUMATICA
     Route: 048
     Dates: start: 20110114, end: 20110121
  2. METAMIZOL [Concomitant]
     Indication: POLYMYALGIA RHEUMATICA
  3. VOLTAREN [Concomitant]
  4. MOVICOL [Concomitant]
  5. CLOPIDOGREL [Concomitant]
     Indication: CORONARY ARTERY DISEASE
  6. BELOK ZOC [Concomitant]
     Indication: CORONARY ARTERY DISEASE
  7. MOLSIHEXAL [Concomitant]
     Indication: CORONARY ARTERY DISEASE
  8. SIMVASTATIN [Concomitant]
     Indication: HYPERLIPIDAEMIA
  9. ESOMEPRAZOL [Concomitant]
     Indication: PROPHYLAXIS AGAINST GASTROINTESTINAL ULCER
  10. ZOPICLONE [Concomitant]
     Indication: SLEEP DISORDER
  11. XELEVIA [Concomitant]
     Indication: DIABETES MELLITUS
     Dates: start: 201003
  12. TRAMADOL [Concomitant]
     Indication: POLYMYALGIA RHEUMATICA
  13. NSAIDS [Concomitant]
     Indication: POLYMYALGIA RHEUMATICA
  14. DICLOFENAC SODIUM [Concomitant]
  15. MCP [Concomitant]
  16. FENTANYL [Concomitant]
     Indication: POLYMYALGIA RHEUMATICA

REACTIONS (7)
  - Personality change [Recovered/Resolved]
  - Disturbance in attention [Recovered/Resolved]
  - Thought blocking [Recovered/Resolved]
  - Malaise [Recovered/Resolved]
  - Mental impairment [Recovered/Resolved]
  - Anxiety [Recovered/Resolved]
  - Constipation [Recovered/Resolved]
